FAERS Safety Report 8809511 (Version 1)
Quarter: 2012Q4

REPORT INFORMATION
  Report Type: 
  Country: US (occurrence: US)
  Receive Date: 20120926
  Receipt Date: 20120926
  Transmission Date: 20130627
  Serious: No
  Sender: FDA-Public Use
  Company Number: US-ASTRAZENECA-2012SE71412

PATIENT
  Age: 26 Year
  Sex: Female
  Weight: 63.5 kg

DRUGS (3)
  1. SEROQUEL XR [Suspect]
     Indication: BIPOLAR DISORDER
     Route: 048
     Dates: start: 201206, end: 201208
  2. SEROQUEL XR [Suspect]
     Indication: BIPOLAR DISORDER
     Route: 048
     Dates: start: 201208
  3. SEROQUEL XR [Suspect]
     Indication: BIPOLAR DISORDER
     Route: 048
     Dates: start: 201208

REACTIONS (5)
  - Anxiety [Unknown]
  - Sleep disorder [Unknown]
  - Tremor [Unknown]
  - Dyspnoea [Unknown]
  - Weight increased [Unknown]
